FAERS Safety Report 17430515 (Version 1)
Quarter: 2020Q1

REPORT INFORMATION
  Report Type: Spontaneous
  Country: US (occurrence: US)
  Receive Date: 20200218
  Receipt Date: 20200218
  Transmission Date: 20200409
  Serious: No
  Sender: FDA-Public Use
  Company Number: US-VERTEX PHARMACEUTICALS-2020-002687

PATIENT
  Sex: Female

DRUGS (1)
  1. TRIKAFTA [Suspect]
     Active Substance: ELEXACAFTOR\IVACAFTOR\TEZACAFTOR
     Indication: CYSTIC FIBROSIS
     Dosage: 2 ORANGE TABLETS IN AM AND 1 BLUE TABLET IN PM
     Route: 048
     Dates: start: 20200130

REACTIONS (3)
  - Cough [Recovering/Resolving]
  - Streptococcal infection [Unknown]
  - Paranasal sinus hypersecretion [Recovering/Resolving]

NARRATIVE: CASE EVENT DATE: 2020
